FAERS Safety Report 10365224 (Version 1)
Quarter: 2014Q3

REPORT INFORMATION
  Report Type: Spontaneous
  Country: FR (occurrence: FR)
  Receive Date: 20140806
  Receipt Date: 20140806
  Transmission Date: 20150326
  Serious: Yes (Death)
  Sender: FDA-Public Use
  Company Number: FR-PFIZER INC-2014217145

PATIENT
  Sex: Male
  Weight: 61 kg

DRUGS (1)
  1. SUTENT [Suspect]
     Active Substance: SUNITINIB MALATE
     Indication: RENAL CANCER METASTATIC
     Dosage: 50 MG, DAILY CYCLIC (2/1)
     Dates: start: 20130516, end: 20130905

REACTIONS (1)
  - Death [Fatal]

NARRATIVE: CASE EVENT DATE: 20131016
